FAERS Safety Report 8489202-5 (Version None)
Quarter: 2012Q3

REPORT INFORMATION
  Report Type: 
  Country: None (occurrence: None)
  Receive Date: 20120705
  Receipt Date: 20120703
  Transmission Date: 20120928
  Serious: Yes (Other)
  Sender: FDA-Public Use
  Company Number: US-PFIZER INC-2012160263

PATIENT
  Sex: Female
  Weight: 62.132 kg

DRUGS (2)
  1. TOVIAZ [Suspect]
     Indication: HYPERTONIC BLADDER
     Dosage: 4 MG, DAILY
     Route: 048
     Dates: start: 20120601
  2. BENICAR [Concomitant]
     Indication: HYPERTENSION
     Dosage: 5 MG, DAILY

REACTIONS (5)
  - DEHYDRATION [None]
  - HYPERTENSION [None]
  - DYSPNOEA [None]
  - HEART RATE INCREASED [None]
  - PALPITATIONS [None]
